FAERS Safety Report 7242121-4 (Version None)
Quarter: 2011Q1

REPORT INFORMATION
  Report Type: 
  Country: None (occurrence: None)
  Receive Date: 20110124
  Receipt Date: 20101109
  Transmission Date: 20110831
  Serious: Yes (Other)
  Sender: FDA-Public Use
  Company Number: US-AMGEN-USASP2010004418

PATIENT
  Age: 78 Year
  Sex: Male

DRUGS (6)
  1. RITUXAN [Concomitant]
  2. ETOPOSIDE [Concomitant]
  3. CYCLOPHOSPHAMIDE [Concomitant]
  4. VINCRISTINE [Concomitant]
  5. DEXAMETHASONE [Concomitant]
  6. NEULASTA [Suspect]
     Indication: CHEMOTHERAPY
     Dates: start: 20100101

REACTIONS (2)
  - BLOOD COUNT ABNORMAL [None]
  - BONE PAIN [None]
